FAERS Safety Report 9440413 (Version 2)
Quarter: 2013Q3

REPORT INFORMATION
  Report Type: Spontaneous
  Country: US (occurrence: US)
  Receive Date: 20130805
  Receipt Date: 20130822
  Transmission Date: 20140515
  Serious: Yes (Other)
  Sender: FDA-Public Use
  Company Number: US-PFIZER INC-2013171776

PATIENT
  Age: 54 Year
  Sex: Male

DRUGS (2)
  1. LYRICA [Suspect]
     Dosage: 75 MG, UNK
  2. ZOLOFT [Suspect]
     Dosage: 100 MG, UNK

REACTIONS (6)
  - Spinal cord injury [Unknown]
  - Diabetes mellitus [Unknown]
  - Bone cancer [Unknown]
  - Cardiac disorder [Unknown]
  - Pain [Unknown]
  - White blood cell disorder [Unknown]
